FAERS Safety Report 5278198-5 (Version None)
Quarter: 2007Q1

REPORT INFORMATION
  Report Type: 
  Country: None (occurrence: None)
  Receive Date: 20061213
  Receipt Date: 20060524
  Transmission Date: 20070707
  Serious: No
  Sender: FDA-Public Use
  Company Number: 2006UW10170

PATIENT
  Age: 6 Year
  Sex: Male

DRUGS (2)
  1. SEROQUEL [Suspect]
     Dosage: 200 MG PO
     Route: 048
     Dates: end: 20050101
  2. RISPERDAL [Concomitant]

REACTIONS (1)
  - AKATHISIA [None]
